FAERS Safety Report 12482826 (Version 1)
Quarter: 2016Q2

REPORT INFORMATION
  Report Type: Report from Study
  Country: US (occurrence: US)
  Receive Date: 20160620
  Receipt Date: 20160620
  Transmission Date: 20160815
  Serious: Yes (Hospitalization)
  Sender: FDA-Public Use
  Company Number: US-ACTELION-A-NJ2015-115132

PATIENT
  Age: 59 Year
  Sex: Female

DRUGS (28)
  1. VECTICAL [Concomitant]
     Active Substance: CALCITRIOL
  2. CLOBEX [Concomitant]
     Active Substance: CLOBETASOL PROPIONATE
  3. MUPIROCIN. [Concomitant]
     Active Substance: MUPIROCIN
     Route: 061
  4. TRILIPIX [Concomitant]
     Active Substance: FENOFIBRIC ACID
  5. AMITRIPTYLINE [Concomitant]
     Active Substance: AMITRIPTYLINE
  6. BUDESONIDE. [Concomitant]
     Active Substance: BUDESONIDE
     Dosage: 1 VIAL, BID
     Route: 055
  7. VENTOLIN HFA [Concomitant]
     Active Substance: ALBUTEROL SULFATE
     Route: 055
  8. POTASSIUM CHLORIDE. [Concomitant]
     Active Substance: POTASSIUM CHLORIDE
  9. ARAVA [Concomitant]
     Active Substance: LEFLUNOMIDE
  10. TOPROL XL [Concomitant]
     Active Substance: METOPROLOL SUCCINATE
  11. VENTAVIS [Suspect]
     Active Substance: ILOPROST
     Dosage: 5 MCG, 5-9X DAILY
     Route: 055
  12. LANOXIN [Suspect]
     Active Substance: DIGOXIN
     Indication: PRODUCT USED FOR UNKNOWN INDICATION
     Route: 065
  13. METOLAZONE. [Concomitant]
     Active Substance: METOLAZONE
  14. CEFADROXIL. [Concomitant]
     Active Substance: CEFADROXIL
  15. NEURONTIN [Concomitant]
     Active Substance: GABAPENTIN
  16. SYNTHROID [Concomitant]
     Active Substance: LEVOTHYROXINE SODIUM
  17. ACCUPRIL [Concomitant]
     Active Substance: QUINAPRIL HYDROCHLORIDE
  18. VENTAVIS [Suspect]
     Active Substance: ILOPROST
     Indication: PULMONARY ARTERIAL HYPERTENSION
     Dosage: 5 MCG, 6-9X DAILY
     Route: 055
     Dates: start: 20140828
  19. XOPENEX [Concomitant]
     Active Substance: LEVALBUTEROL HYDROCHLORIDE
     Dosage: UNK, BID
  20. HYDROCODONE [Concomitant]
     Active Substance: HYDROCODONE
  21. LIPITOR [Concomitant]
     Active Substance: ATORVASTATIN CALCIUM
  22. IMDUR [Concomitant]
     Active Substance: ISOSORBIDE MONONITRATE
  23. NEXIUM [Concomitant]
     Active Substance: ESOMEPRAZOLE MAGNESIUM
  24. LANTUS [Concomitant]
     Active Substance: INSULIN GLARGINE
  25. JANUMET [Concomitant]
     Active Substance: METFORMIN HYDROCHLORIDE\SITAGLIPTIN PHOSPHATE
  26. APIDRA [Concomitant]
     Active Substance: INSULIN GLULISINE
  27. PAROXETINE. [Concomitant]
     Active Substance: PAROXETINE
  28. FUROSEMIDE. [Concomitant]
     Active Substance: FUROSEMIDE

REACTIONS (11)
  - Acute kidney injury [Recovered/Resolved]
  - Limb operation [Unknown]
  - Cardiac failure congestive [Recovering/Resolving]
  - Blister [Recovering/Resolving]
  - Lower extremity mass [Unknown]
  - Dyspnoea [Recovering/Resolving]
  - Toxicity to various agents [Recovering/Resolving]
  - Acute respiratory failure [Recovering/Resolving]
  - Chronic obstructive pulmonary disease [Recovering/Resolving]
  - Oedema [Recovering/Resolving]
  - Bradycardia [Recovering/Resolving]

NARRATIVE: CASE EVENT DATE: 20150317
